FAERS Safety Report 10415431 (Version 1)
Quarter: 2014Q1

REPORT INFORMATION
  Report Type: Spontaneous
  Country: US (occurrence: None)
  Receive Date: 20130521
  Receipt Date: 20130521
  Transmission Date: 20141002
  Serious: No
  Sender: FDA-Public Use
  Company Number: 1000044206

PATIENT
  Age: 77 Year
  Sex: Male

DRUGS (9)
  1. TUDORZA PRESSAIR [Suspect]
     Indication: CHRONIC OBSTRUCTIVE PULMONARY DISEASE
     Dosage: 800MCG (400 MCG, 2 IN 1 D), RESPIRATORY (INHALATION)
     Route: 055
     Dates: start: 2013, end: 2013
  2. TUDORZA PRESSAIR [Suspect]
     Indication: CHRONIC OBSTRUCTIVE PULMONARY DISEASE
     Dosage: 800MCG (400 MCG, 2 IN 1 D), RESPIRATORY (INHALATION)
     Route: 055
     Dates: start: 2013, end: 20130408
  3. ADVAIR (SERETIDE) (SERETIDE) [Concomitant]
  4. SIMVASTATIN (SIMVASTATIN) (SIMVASTATIN) [Concomitant]
  5. ASA (ACETYLSALICYLIC ACID) (ACETYLSALICYLIC ACID) [Concomitant]
  6. NORVASC (AMLODIPINE BESILATE) (AMLODIPINE BESILATE) [Concomitant]
  7. LISINOPRIL (LISINOPRIL) (LISINOPRIL) [Concomitant]
  8. DALIRESP (ROFLUMILAST) (ROFLUMILAST) [Concomitant]
  9. ATENOLOL (ATENOLOL) (ATENOLOL) [Concomitant]

REACTIONS (1)
  - Insomnia [None]
